FAERS Safety Report 9668292 (Version 3)
Quarter: 2014Q2

REPORT INFORMATION
  Report Type: Spontaneous
  Country: US (occurrence: US)
  Receive Date: 20131104
  Receipt Date: 20140614
  Transmission Date: 20141212
  Serious: Yes (Hospitalization)
  Sender: FDA-Public Use
  Company Number: US-ALLERGAN-1315937US

PATIENT
  Age: 25 Year
  Sex: Female

DRUGS (11)
  1. BOTOX [Suspect]
     Indication: MIGRAINE
     Dosage: 188 UNITS, SINGLE
     Route: 030
     Dates: start: 20131008, end: 20131008
  2. BOTOX [Suspect]
     Dosage: UNK
     Dates: start: 20130425, end: 20130425
  3. ZOMIG [Concomitant]
     Indication: PRODUCT USED FOR UNKNOWN INDICATION
     Dosage: UNK
  4. NORCO [Concomitant]
     Indication: PRODUCT USED FOR UNKNOWN INDICATION
     Dosage: UNK
  5. VITAMIN D2 [Concomitant]
     Indication: PRODUCT USED FOR UNKNOWN INDICATION
     Dosage: UNK
  6. COLACE [Concomitant]
     Indication: PRODUCT USED FOR UNKNOWN INDICATION
     Dosage: UNK
  7. XANAX [Concomitant]
     Indication: PRODUCT USED FOR UNKNOWN INDICATION
     Dosage: UNK
  8. TRAZODONE [Concomitant]
     Indication: PRODUCT USED FOR UNKNOWN INDICATION
     Dosage: UNK
  9. LEVOTHYROXINE [Concomitant]
     Indication: PRODUCT USED FOR UNKNOWN INDICATION
     Dosage: UNK
  10. VITAMIN B2                         /00154901/ [Concomitant]
     Indication: PRODUCT USED FOR UNKNOWN INDICATION
     Dosage: UNK
  11. ZANAFLEX [Concomitant]
     Indication: PRODUCT USED FOR UNKNOWN INDICATION
     Dosage: UNK

REACTIONS (9)
  - Eating disorder [Recovered/Resolved]
  - Dysphagia [Recovered/Resolved]
  - Pallor [Unknown]
  - Asthenia [Unknown]
  - Dysphonia [Unknown]
  - Dyspnoea [Unknown]
  - Muscular weakness [Unknown]
  - Muscular weakness [Unknown]
  - Guillain-Barre syndrome [Unknown]
